FAERS Safety Report 22094002 (Version 1)
Quarter: 2023Q1

REPORT INFORMATION
  Report Type: Spontaneous
  Country: US (occurrence: None)
  Receive Date: 20230314
  Receipt Date: 20230314
  Transmission Date: 20230417
  Serious: Yes (Hospitalization)
  Sender: FDA-Public Use
  Company Number: None

PATIENT
  Age: 73 Year
  Sex: Male
  Weight: 84.6 kg

DRUGS (17)
  1. ERLEADA [Suspect]
     Active Substance: APALUTAMIDE
     Indication: Prostate cancer
     Dosage: FREQUENCY : TWICE A DAY;?
     Route: 048
     Dates: start: 20220125
  2. Entresto 24/26mg [Concomitant]
  3. Fish Oil 1000mg [Concomitant]
  4. FUROSEMIDE [Concomitant]
     Active Substance: FUROSEMIDE
  5. Vitamin B12 500mcg [Concomitant]
  6. Vitamin D 50mcg [Concomitant]
  7. Zinc 50mg [Concomitant]
  8. VITAMIN C [Concomitant]
     Active Substance: ASCORBIC ACID
  9. TAMSULOSIN [Concomitant]
     Active Substance: TAMSULOSIN
  10. Glyburide 5mg [Concomitant]
  11. Asprin 81mg [Concomitant]
  12. METFORMIN [Concomitant]
     Active Substance: METFORMIN HYDROCHLORIDE
  13. metropolol xl 100mg [Concomitant]
  14. AMLODIPINE [Concomitant]
     Active Substance: AMLODIPINE BESYLATE
  15. LOSARTAN [Concomitant]
     Active Substance: LOSARTAN
  16. ATORVASTATIN [Concomitant]
     Active Substance: ATORVASTATIN
  17. SYNTHROID [Concomitant]
     Active Substance: LEVOTHYROXINE SODIUM

REACTIONS (2)
  - Staphylococcal sepsis [None]
  - Post procedural sepsis [None]

NARRATIVE: CASE EVENT DATE: 20230305
